FAERS Safety Report 9997693 (Version 2)
Quarter: 2014Q2

REPORT INFORMATION
  Report Type: Spontaneous
  Country: US (occurrence: US)
  Receive Date: 20140311
  Receipt Date: 20140408
  Transmission Date: 20141212
  Serious: Yes (Death, Hospitalization, Other)
  Sender: FDA-Public Use
  Company Number: US-PFIZER INC-2014067778

PATIENT
  Age: 68 Year
  Sex: Male

DRUGS (1)
  1. SUTENT [Suspect]
     Indication: RENAL CANCER
     Dosage: 50 MG, CYCLIC (4 WEEKS ON 2 WEEKS OFF)
     Route: 048
     Dates: start: 20130612, end: 20140113

REACTIONS (19)
  - Disease progression [Fatal]
  - Renal cancer [Fatal]
  - Mucosal inflammation [Not Recovered/Not Resolved]
  - Diarrhoea [Unknown]
  - Urinary retention [Unknown]
  - Decubitus ulcer [Unknown]
  - Oedema peripheral [Unknown]
  - Blood test abnormal [Unknown]
  - Neuropathy peripheral [Unknown]
  - Chronic sinusitis [Unknown]
  - Nasal turbinate hypertrophy [Unknown]
  - Paraesthesia [Unknown]
  - Cough [Unknown]
  - Abdominal pain [Unknown]
  - Prostatic specific antigen increased [Unknown]
  - Hypertension [Unknown]
  - Constipation [Unknown]
  - Rash [Unknown]
  - Back pain [Recovering/Resolving]
